FAERS Safety Report 11350577 (Version 2)
Quarter: 2015Q3

REPORT INFORMATION
  Report Type: Spontaneous
  Country: JP (occurrence: JP)
  Receive Date: 20150807
  Receipt Date: 20150814
  Transmission Date: 20151125
  Serious: Yes (Hospitalization, Other)
  Sender: FDA-Public Use
  Company Number: JP-009507513-1508JPN002817

PATIENT
  Age: 42 Year
  Sex: Male

DRUGS (2)
  1. REFLEX [Suspect]
     Active Substance: MIRTAZAPINE
     Indication: PRODUCT USED FOR UNKNOWN INDICATION
     Dosage: 450 MG, ONCE
     Route: 048
     Dates: start: 20150802, end: 20150802
  2. QUETIAPINE FUMARATE. [Concomitant]
     Active Substance: QUETIAPINE FUMARATE
     Indication: PRODUCT USED FOR UNKNOWN INDICATION
     Dosage: 100 MG, QD
     Route: 048

REACTIONS (7)
  - Muscle spasms [Not Recovered/Not Resolved]
  - Masked facies [Unknown]
  - Hyperhidrosis [Unknown]
  - Depressed level of consciousness [Not Recovered/Not Resolved]
  - Nausea [Recovered/Resolved]
  - Intentional overdose [Unknown]
  - Seizure [Not Recovered/Not Resolved]

NARRATIVE: CASE EVENT DATE: 20150802
